FAERS Safety Report 4726209-5 (Version None)
Quarter: 2005Q3

REPORT INFORMATION
  Report Type: 
  Country: None (occurrence: None)
  Receive Date: 20050725
  Receipt Date: 20050725
  Transmission Date: 20060218
  Serious: Yes (Other)
  Sender: FDA-Public Use
  Company Number: None

PATIENT
  Age: 55 Year
  Sex: Male

DRUGS (3)
  1. DEXTROMETHORPHAN HYDROBROMIDE [Suspect]
     Indication: COUGH
     Dosage: 12.5 MG, ONCE/SINGLE
     Route: 065
     Dates: start: 20050701, end: 20050701
  2. VITAMIN C (ASCORBIC ACID) [Concomitant]
  3. ANTI-HISTAMINE TAB [Concomitant]

REACTIONS (2)
  - BRONCHOSPASM [None]
  - STOMACH DISCOMFORT [None]
